FAERS Safety Report 13710307 (Version 1)
Quarter: 2017Q2

REPORT INFORMATION
  Report Type: Spontaneous
  Country: US (occurrence: US)
  Receive Date: 20170630
  Receipt Date: 20170630
  Transmission Date: 20170830
  Serious: No
  Sender: FDA-Public Use
  Company Number: None

PATIENT
  Sex: Female
  Weight: 86.26 kg

DRUGS (1)
  1. FORTEO [Suspect]
     Active Substance: TERIPARATIDE
     Route: 058

REACTIONS (9)
  - Paraesthesia [None]
  - Depression [None]
  - Mobility decreased [None]
  - Malaise [None]
  - Hypoaesthesia [None]
  - Abdominal pain upper [None]
  - Eating disorder [None]
  - Headache [None]
  - Anxiety [None]
